FAERS Safety Report 15681369 (Version 2)
Quarter: 2019Q1

REPORT INFORMATION
  Report Type: Spontaneous
  Country: JP (occurrence: JP)
  Receive Date: 20181203
  Receipt Date: 20190124
  Transmission Date: 20190417
  Serious: Yes (Death, Other)
  Sender: FDA-Public Use
  Company Number: JP-ELI_LILLY_AND_COMPANY-JP201811013496

PATIENT
  Age: 61 Year
  Sex: Male
  Weight: 67 kg

DRUGS (2)
  1. PACLITAXEL. [Suspect]
     Active Substance: PACLITAXEL
     Indication: GASTRIC CANCER STAGE IV
     Dosage: 114 MG, CYCLICAL
     Route: 041
     Dates: start: 20180605, end: 20180612
  2. CYRAMZA [Suspect]
     Active Substance: RAMUCIRUMAB
     Indication: GASTRIC CANCER STAGE IV
     Dosage: 554 MG, CYCLICAL
     Route: 041
     Dates: start: 20180605, end: 20180605

REACTIONS (4)
  - Disseminated intravascular coagulation [Fatal]
  - Bone marrow failure [Unknown]
  - Septic shock [Fatal]
  - Febrile neutropenia [Fatal]

NARRATIVE: CASE EVENT DATE: 20180619
